FAERS Safety Report 6504910-0 (Version None)
Quarter: 2009Q4

REPORT INFORMATION
  Report Type: 
  Country: None (occurrence: None)
  Receive Date: 20091218
  Receipt Date: 20091210
  Transmission Date: 20100525
  Serious: Yes (Other)
  Sender: FDA-Public Use
  Company Number: JP-ROCHE-673406

PATIENT
  Sex: Male

DRUGS (4)
  1. TAMIFLU [Suspect]
     Indication: INFLUENZA
     Route: 048
     Dates: start: 20091117, end: 20091117
  2. TAMIFLU [Suspect]
     Dosage: DISCONTINUED
     Route: 048
     Dates: start: 20091118, end: 20091118
  3. MEDICON [Concomitant]
     Route: 048
     Dates: start: 20091117
  4. CALONAL [Concomitant]
     Route: 048

REACTIONS (1)
  - AGITATION [None]
